FAERS Safety Report 12234117 (Version 2)
Quarter: 2016Q2

REPORT INFORMATION
  Report Type: Report from Study
  Country: GB (occurrence: GB)
  Receive Date: 20160404
  Receipt Date: 20160406
  Transmission Date: 20160815
  Serious: Yes (Other)
  Sender: FDA-Public Use
  Company Number: PHHY2014GB063494

PATIENT
  Age: 39 Year
  Sex: Female

DRUGS (9)
  1. TAPENTADOL [Concomitant]
     Active Substance: TAPENTADOL
     Indication: COMPLEX REGIONAL PAIN SYNDROME
     Dosage: 250 MG, BID
     Route: 065
     Dates: start: 201401
  2. MODAFINIL. [Concomitant]
     Active Substance: MODAFINIL
     Indication: FATIGUE
     Route: 065
     Dates: start: 2005
  3. VERSATIS [Concomitant]
     Active Substance: LIDOCAINE
     Indication: ARTHRALGIA
  4. VERSATIS [Concomitant]
     Active Substance: LIDOCAINE
     Indication: COMPLEX REGIONAL PAIN SYNDROME
     Route: 065
     Dates: start: 201302
  5. GILENYA [Suspect]
     Active Substance: FINGOLIMOD HYDROCHLORIDE
     Indication: MULTIPLE SCLEROSIS
     Dosage: 0.5 MG, QD
     Route: 048
     Dates: start: 20130903
  6. DULOXETINE. [Concomitant]
     Active Substance: DULOXETINE
     Indication: BIPOLAR DISORDER
     Route: 065
     Dates: start: 201109
  7. LANSOPRAZOLE. [Concomitant]
     Active Substance: LANSOPRAZOLE
     Indication: HIATUS HERNIA
     Route: 065
     Dates: start: 2003
  8. QUETIAPINE. [Concomitant]
     Active Substance: QUETIAPINE
     Indication: BIPOLAR DISORDER
     Route: 065
     Dates: start: 201309
  9. PREGABALIN. [Concomitant]
     Active Substance: PREGABALIN
     Indication: PAIN
     Dosage: 400 MG, UNK
     Route: 065
     Dates: start: 201302

REACTIONS (13)
  - Muscle spasms [Unknown]
  - Blood alkaline phosphatase increased [Unknown]
  - Epistaxis [Recovered/Resolved]
  - Multiple sclerosis relapse [Unknown]
  - Palpitations [Recovered/Resolved]
  - Lymphocyte count decreased [Unknown]
  - Pleurisy [Recovered/Resolved]
  - Lower respiratory tract infection [Recovered/Resolved]
  - Vitamin B12 deficiency [Unknown]
  - Nasopharyngitis [Recovered/Resolved]
  - Arthritis [Unknown]
  - Groin pain [Unknown]
  - Urinary tract infection [Recovered/Resolved]

NARRATIVE: CASE EVENT DATE: 20130912
